FAERS Safety Report 22116532 (Version 1)
Quarter: 2023Q1

REPORT INFORMATION
  Report Type: Spontaneous
  Country: US (occurrence: None)
  Receive Date: 20230320
  Receipt Date: 20230320
  Transmission Date: 20230418
  Serious: Yes (Hospitalization)
  Sender: FDA-Public Use
  Company Number: None

PATIENT
  Age: 55 Year
  Sex: Female
  Weight: 65.25 kg

DRUGS (10)
  1. METHYLPREDNISOLONE [Suspect]
     Active Substance: METHYLPREDNISOLONE
     Indication: Arthropod bite
     Dosage: 1 TABLET 6-DAY1, 5-DAY ORAL
     Route: 048
     Dates: start: 20230314, end: 20230319
  2. Pumpkin Seed Oil Capsule [Concomitant]
  3. VITAMIN D [Concomitant]
     Active Substance: VITAMIN D NOS
  4. VITAMIN B12 [Concomitant]
     Active Substance: CYANOCOBALAMIN
  5. OMEGA 3 [Concomitant]
     Active Substance: CAPSAICIN
  6. MAGNESIUM [Concomitant]
     Active Substance: MAGNESIUM
  7. HERBALS\TURMERIC [Concomitant]
     Active Substance: HERBALS\TURMERIC
  8. CoQ10 Enzyme [Concomitant]
  9. PROBIOTICS NOS [Concomitant]
     Active Substance: PROBIOTICS NOS
  10. ZOCOR [Concomitant]
     Active Substance: SIMVASTATIN

REACTIONS (8)
  - Vaginal haemorrhage [None]
  - Postmenopausal haemorrhage [None]
  - Neoplasm malignant [None]
  - Uterine spasm [None]
  - Pruritus [None]
  - Hot flush [None]
  - Pruritus [None]
  - Pruritus [None]

NARRATIVE: CASE EVENT DATE: 20230317
